FAERS Safety Report 15498163 (Version 1)
Quarter: 2018Q4

REPORT INFORMATION
  Report Type: Spontaneous
  Country: US (occurrence: US)
  Receive Date: 20181014
  Receipt Date: 20181014
  Transmission Date: 20190205
  Serious: No
  Sender: FDA-Public Use
  Company Number: None

PATIENT
  Age: 44 Year
  Sex: Male
  Weight: 127.35 kg

DRUGS (20)
  1. MASHROOMS [Concomitant]
  2. TAFINLAR [Suspect]
     Active Substance: DABRAFENIB MESYLATE
     Indication: METASTASES TO LYMPH NODES
     Dosage: ?          QUANTITY:1 CAPSULE(S);?
     Route: 048
     Dates: start: 20180921, end: 20181005
  3. MEKINIST [Suspect]
     Active Substance: TRAMETINIB DIMETHYL SULFOXIDE
     Indication: MALIGNANT MELANOMA
     Dosage: ?          QUANTITY:1 CAPSULE(S);?
     Route: 048
     Dates: start: 20180921, end: 20181005
  4. CALCIUM [Concomitant]
     Active Substance: CALCIUM
  5. PRIMADOLPHILUS [Concomitant]
  6. VITAMIN D3 [Concomitant]
     Active Substance: CHOLECALCIFEROL
  7. ROOT LIVER OPTIMIZER BIOASTIN [Concomitant]
  8. LIPOSOMAL [Concomitant]
     Active Substance: AMPHOTERICIN B
  9. GINGER. [Concomitant]
     Active Substance: GINGER
  10. TURMERIC [Concomitant]
     Active Substance: HERBALS\TURMERIC
  11. VITAMIN C [Concomitant]
     Active Substance: ASCORBIC ACID
  12. MEKINIST [Suspect]
     Active Substance: TRAMETINIB DIMETHYL SULFOXIDE
     Indication: METASTASES TO LYMPH NODES
     Dosage: ?          QUANTITY:1 CAPSULE(S);?
     Route: 048
     Dates: start: 20180921, end: 20181005
  13. MULTIVITAMIN [Concomitant]
     Active Substance: VITAMINS
  14. BIOTIN [Concomitant]
     Active Substance: BIOTIN
  15. AGARIKON [Concomitant]
  16. HAWAIIAN ASTAXANTHIN [Concomitant]
  17. TAFINLAR [Suspect]
     Active Substance: DABRAFENIB MESYLATE
     Indication: MALIGNANT MELANOMA
     Dosage: ?          QUANTITY:1 CAPSULE(S);?
     Route: 048
     Dates: start: 20180921, end: 20181005
  18. MAGNESIUM [Concomitant]
     Active Substance: MAGNESIUM
  19. ZINC. [Concomitant]
     Active Substance: ZINC
  20. CURCUMIN W/BIOPERINE [Concomitant]

REACTIONS (10)
  - Asthenia [None]
  - Arthralgia [None]
  - Headache [None]
  - Abdominal pain upper [None]
  - Dermatitis allergic [None]
  - Chills [None]
  - Pyrexia [None]
  - Myalgia [None]
  - Fatigue [None]
  - Hyperhidrosis [None]
